FAERS Safety Report 4847905-5 (Version None)
Quarter: 2005Q4

REPORT INFORMATION
  Report Type: 
  Country: None (occurrence: None)
  Receive Date: 20051206
  Receipt Date: 20051206
  Transmission Date: 20060501
  Serious: No
  Sender: FDA-Public Use
  Company Number: None

PATIENT
  Age: 18 Year
  Sex: Male
  Weight: 84.369 kg

DRUGS (1)
  1. NUVARING [Suspect]
     Indication: CONTRACEPTION
     Dosage: ETONORGESTREL  0.12 MG  LEAVE IN FOR 3 WKS   VAG;   ESTRADIOL 0.015 MG
     Route: 067

REACTIONS (4)
  - ERYTHEMA [None]
  - MEDICAL DEVICE COMPLICATION [None]
  - PENILE HAEMORRHAGE [None]
  - PENILE SWELLING [None]
